FAERS Safety Report 9852045 (Version 2)
Quarter: 2014Q1

REPORT INFORMATION
  Report Type: Spontaneous
  Country: US (occurrence: US)
  Receive Date: 20140129
  Receipt Date: 20140129
  Transmission Date: 20141002
  Serious: No
  Sender: FDA-Public Use
  Company Number: US-PFIZER INC-2013295775

PATIENT
  Age: 55 Year
  Sex: Female

DRUGS (13)
  1. ENBREL [Suspect]
     Indication: RHEUMATOID ARTHRITIS
     Dosage: UNK
  2. EFFEXOR XR [Suspect]
     Dosage: UNK
  3. EFFEXOR [Suspect]
     Dosage: UNK
  4. ORENCIA [Suspect]
     Dosage: UNK
  5. CYMBALTA [Suspect]
     Dosage: UNK
  6. SIMPONI [Suspect]
     Dosage: UNK
  7. PRAVA [Suspect]
     Dosage: UNK
  8. LEXAPRO [Suspect]
     Dosage: UNK
  9. RITUXAN [Suspect]
     Dosage: UNK
  10. HUMIRA [Suspect]
     Dosage: UNK
  11. SAVELLA [Suspect]
     Dosage: UNK
  12. VIIBRYD [Suspect]
     Dosage: UNK
  13. WELLBUTRIN SR [Suspect]
     Dosage: UNK

REACTIONS (1)
  - Drug hypersensitivity [Unknown]
